FAERS Safety Report 18379643 (Version 28)
Quarter: 2025Q4

REPORT INFORMATION
  Report Type: Report from Study
  Country: US (occurrence: US)
  Receive Date: 20201014
  Receipt Date: 20251208
  Transmission Date: 20260117
  Serious: Yes (Hospitalization, Other)
  Sender: TAKEDA
  Company Number: US-SHIRE-US202033393

PATIENT
  Age: 81 Year
  Sex: Female
  Weight: 57.5 kg

DRUGS (27)
  1. HUMAN IMMUNOGLOBULIN G [Suspect]
     Active Substance: HUMAN IMMUNOGLOBULIN G
     Indication: Immunodeficiency common variable
     Dosage: 10 GRAM, 1/WEEK
  2. HUMAN IMMUNOGLOBULIN G [Suspect]
     Active Substance: HUMAN IMMUNOGLOBULIN G
     Dosage: 10 GRAM, 1/WEEK
     Dates: start: 20200922
  3. DIPHENHYDRAMINE HYDROCHLORIDE [Concomitant]
     Active Substance: DIPHENHYDRAMINE HYDROCHLORIDE
     Dosage: UNK
  4. ATORVASTATIN CALCIUM [Concomitant]
     Active Substance: ATORVASTATIN CALCIUM
     Dosage: UNK
  5. ASPIRIN [Concomitant]
     Active Substance: ASPIRIN
     Dosage: UNK
  6. BREO ELLIPTA [Concomitant]
     Active Substance: FLUTICASONE FUROATE\VILANTEROL TRIFENATATE
     Dosage: UNK
  7. GABAPENTIN [Concomitant]
     Active Substance: GABAPENTIN
     Dosage: UNK
  8. SPIRIVA RESPIMAT [Concomitant]
     Active Substance: TIOTROPIUM BROMIDE
     Dosage: UNK
  9. PREDNISONE [Concomitant]
     Active Substance: PREDNISONE
     Dosage: UNK
  10. ACETAMINOPHEN [Concomitant]
     Active Substance: ACETAMINOPHEN
     Dosage: UNK
  11. VITAMIN D3 [Concomitant]
     Active Substance: CHOLECALCIFEROL
     Dosage: UNK
  12. CELEBREX [Concomitant]
     Active Substance: CELECOXIB
     Dosage: UNK
  13. ALPRAZOLAM [Concomitant]
     Active Substance: ALPRAZOLAM
     Dosage: UNK
  14. CREON [Concomitant]
     Active Substance: PANCRELIPASE AMYLASE\PANCRELIPASE LIPASE\PANCRELIPASE PROTEASE
     Dosage: UNK
  15. ALBUTEROL SULFATE [Concomitant]
     Active Substance: ALBUTEROL SULFATE
     Dosage: UNK
  16. MONTELUKAST SODIUM [Concomitant]
     Active Substance: MONTELUKAST SODIUM
     Dosage: UNK
  17. PROTONIX [Concomitant]
     Active Substance: PANTOPRAZOLE SODIUM
     Dosage: UNK
  18. LOSARTAN POTASSIUM [Concomitant]
     Active Substance: LOSARTAN POTASSIUM
     Dosage: UNK
  19. HYDROCHLOROTHIAZIDE [Concomitant]
     Active Substance: HYDROCHLOROTHIAZIDE
     Dosage: UNK
  20. Lmx [Concomitant]
     Dosage: UNK
  21. EPINEPHRINE [Concomitant]
     Active Substance: EPINEPHRINE
     Dosage: UNK
  22. PROLIA [Concomitant]
     Active Substance: DENOSUMAB
     Dosage: UNK
  23. CETIRIZINE HCL [Concomitant]
     Active Substance: CETIRIZINE HYDROCHLORIDE
     Dosage: UNK
  24. BACLOFEN [Concomitant]
     Active Substance: BACLOFEN
     Dosage: UNK
  25. VENTOLIN [Concomitant]
     Active Substance: ALBUTEROL SULFATE
     Dosage: UNK
  26. VITAMIN B12 [Concomitant]
     Active Substance: CYANOCOBALAMIN
     Dosage: UNK
  27. VITAMIN B [Concomitant]
     Active Substance: VITAMIN B
     Dosage: UNK

REACTIONS (33)
  - Appendix disorder [Unknown]
  - Pneumonia [Unknown]
  - Heart rate irregular [Unknown]
  - Compression fracture [Unknown]
  - Skin cancer [Unknown]
  - Seasonal allergy [Unknown]
  - Weight decreased [Unknown]
  - Drug hypersensitivity [Unknown]
  - COVID-19 [Unknown]
  - Weight increased [Unknown]
  - Gastrointestinal disorder [Unknown]
  - Respiratory syncytial virus infection [Unknown]
  - Pharyngitis [Unknown]
  - Product dose omission issue [Unknown]
  - Inappropriate schedule of product administration [Unknown]
  - Infection [Unknown]
  - Head injury [Recovering/Resolving]
  - Fall [Recovering/Resolving]
  - Depression [Unknown]
  - Product distribution issue [Unknown]
  - Sinusitis [Unknown]
  - Asthma [Unknown]
  - Vertigo [Unknown]
  - Infusion site reaction [Unknown]
  - Infusion site erythema [Unknown]
  - Dyspepsia [Unknown]
  - Infusion site swelling [Unknown]
  - Dyspnoea [Unknown]
  - Infusion site pain [Unknown]
  - Abdominal pain [Unknown]
  - Pruritus [Unknown]
  - Headache [Recovering/Resolving]
  - Scab [Unknown]

NARRATIVE: CASE EVENT DATE: 20220607
